FAERS Safety Report 7519064-1 (Version None)
Quarter: 2011Q2

REPORT INFORMATION
  Report Type: 
  Country: None (occurrence: None)
  Receive Date: 20110602
  Receipt Date: 20110531
  Transmission Date: 20111010
  Serious: Yes (Other)
  Sender: FDA-Public Use
  Company Number: US-PFIZER INC-2011117947

PATIENT
  Sex: Female
  Weight: 53.061 kg

DRUGS (2)
  1. CHANTIX [Suspect]
     Indication: SMOKING CESSATION THERAPY
     Dosage: 0.5 MG, 1X/DAY
     Route: 048
     Dates: start: 20110401, end: 20110101
  2. CHANTIX [Suspect]
     Dosage: UNK
     Route: 048
     Dates: start: 20110101, end: 20110501

REACTIONS (3)
  - SELF INJURIOUS BEHAVIOUR [None]
  - SUICIDAL IDEATION [None]
  - NEPHROLITHIASIS [None]
